FAERS Safety Report 9548734 (Version 1)
Quarter: 2013Q2

REPORT INFORMATION
  Report Type: Spontaneous
  Country: US (occurrence: None)
  Receive Date: 20130627
  Receipt Date: 20130627
  Transmission Date: 20140414
  Serious: Yes (Other)
  Sender: FDA-Public Use
  Company Number: 1000044679

PATIENT
  Age: 60 Year
  Sex: Female

DRUGS (4)
  1. LINZESS [Suspect]
     Indication: IRRITABLE BOWEL SYNDROME
     Route: 048
     Dates: start: 20130415
  2. CITRUCEL (METHYLCELLULOSE) [Concomitant]
  3. MIRALAX (POLYETHYLENE GLYCOL) [Concomitant]
  4. PANTOPRAZOLE [Concomitant]

REACTIONS (6)
  - Diarrhoea [None]
  - Abdominal distension [None]
  - Abdominal discomfort [None]
  - Headache [None]
  - Hypoaesthesia [None]
  - Feeling cold [None]
